FAERS Safety Report 22293777 (Version 2)
Quarter: 2023Q2

REPORT INFORMATION
  Report Type: Spontaneous
  Country: US (occurrence: US)
  Receive Date: 20230508
  Receipt Date: 20230520
  Transmission Date: 20230722
  Serious: No
  Sender: FDA-Public Use
  Company Number: US-ViiV Healthcare Limited-95458

PATIENT
  Age: 47 Year
  Sex: Female
  Weight: 59.02 kg

DRUGS (2)
  1. RILPIVIRINE [Suspect]
     Active Substance: RILPIVIRINE
     Indication: Product used for unknown indication
     Dosage: UNK
     Route: 065
  2. CABOTEGRAVIR [Suspect]
     Active Substance: CABOTEGRAVIR
     Indication: Product used for unknown indication
     Dosage: UNK
     Route: 065

REACTIONS (4)
  - Injury associated with device [Unknown]
  - Accidental exposure to product [Unknown]
  - Device difficult to use [Unknown]
  - Wrong technique in device usage process [Unknown]
